FAERS Safety Report 17851706 (Version 1)
Quarter: 2020Q2

REPORT INFORMATION
  Report Type: Spontaneous
  Country: US (occurrence: US)
  Receive Date: 20200602
  Receipt Date: 20200602
  Transmission Date: 20200714
  Serious: Yes (Death, Hospitalization, Other)
  Sender: FDA-Public Use
  Company Number: US-ROCHE-2613311

PATIENT
  Sex: Male
  Weight: 68.8 kg

DRUGS (10)
  1. GABAPENTIN. [Concomitant]
     Active Substance: GABAPENTIN
  2. ATORVASTATIN [Concomitant]
     Active Substance: ATORVASTATIN
  3. ASPIRIN [ACETYLSALICYLIC ACID] [Concomitant]
     Active Substance: ASPIRIN
  4. HYZAAR [Concomitant]
     Active Substance: HYDROCHLOROTHIAZIDE\LOSARTAN POTASSIUM
  5. METOPROLOL. [Concomitant]
     Active Substance: METOPROLOL
  6. OXYCODONE [Concomitant]
     Active Substance: OXYCODONE
  7. NORCO [Concomitant]
     Active Substance: ACETAMINOPHEN\HYDROCODONE BITARTRATE
  8. TRAMADOL. [Concomitant]
     Active Substance: TRAMADOL
  9. ROZLYTREK [Suspect]
     Active Substance: ENTRECTINIB
     Indication: LUNG CARCINOMA CELL TYPE UNSPECIFIED STAGE IV
     Route: 048
     Dates: start: 20190924, end: 20191007
  10. ROZLYTREK [Suspect]
     Active Substance: ENTRECTINIB
     Indication: NTRK GENE FUSION OVEREXPRESSION

REACTIONS (8)
  - Mental status changes [Unknown]
  - Cognitive disorder [Unknown]
  - Dizziness [Unknown]
  - Fall [Unknown]
  - Lethargy [Unknown]
  - Acute respiratory failure [Unknown]
  - Death [Fatal]
  - Acute kidney injury [Unknown]
